FAERS Safety Report 8314998-2 (Version None)
Quarter: 2012Q2

REPORT INFORMATION
  Report Type: 
  Country: None (occurrence: None)
  Receive Date: 20120426
  Receipt Date: 20120126
  Transmission Date: 20120825
  Serious: No
  Sender: FDA-Public Use
  Company Number: US-MUTUAL PHARMACEUTICAL COMPANY, INC.-CLCY20120029

PATIENT
  Sex: Male

DRUGS (4)
  1. COLCRYS [Suspect]
     Indication: GOUT
     Route: 048
  2. DIOVAN [Concomitant]
     Indication: HYPERTENSION
     Route: 065
  3. METOPROLOL TARTRATE [Concomitant]
     Indication: HYPERTENSION
     Route: 065
  4. TESTOSTERONE INJ [Concomitant]
     Indication: HORMONE REPLACEMENT THERAPY
     Route: 030

REACTIONS (3)
  - SWOLLEN TONGUE [None]
  - HYPERSENSITIVITY [None]
  - FLUSHING [None]
